FAERS Safety Report 6123801-0 (Version None)
Quarter: 2009Q1

REPORT INFORMATION
  Report Type: 
  Country: None (occurrence: None)
  Receive Date: 20090317
  Receipt Date: 20090226
  Transmission Date: 20090719
  Serious: Yes (Hospitalization)
  Sender: FDA-Public Use
  Company Number: 000503

PATIENT
  Sex: Female
  Weight: 46 kg

DRUGS (2)
  1. NEUPRO [Suspect]
     Indication: PARKINSON'S DISEASE
     Dosage: TRANSDERMAL
     Route: 062
     Dates: start: 20080101
  2. LEVODOPA/CARBIDOPA (LEVODOPA CARBIDOPA SANDOZ 100/25) (NOT SPECIFIED) [Suspect]
     Indication: PARKINSON'S DISEASE

REACTIONS (6)
  - DYSPHAGIA [None]
  - FEELING ABNORMAL [None]
  - LOSS OF CONSCIOUSNESS [None]
  - MUSCLE SPASMS [None]
  - NAUSEA [None]
  - OEDEMA PERIPHERAL [None]
